FAERS Safety Report 20912405 (Version 1)
Quarter: 2022Q2

REPORT INFORMATION
  Report Type: Spontaneous
  Country: AU (occurrence: None)
  Receive Date: 20220603
  Receipt Date: 20220603
  Transmission Date: 20220721
  Serious: Yes (Other)
  Sender: FDA-Public Use
  Company Number: AU-ROCHE-3105622

PATIENT
  Age: 84 Year
  Sex: Male

DRUGS (15)
  1. ACTEMRA [Suspect]
     Active Substance: TOCILIZUMAB
     Indication: Product used for unknown indication
     Route: 065
  2. PREDNISOLONE [Suspect]
     Active Substance: PREDNISOLONE
     Indication: Product used for unknown indication
     Route: 065
  3. METHOTREXATE [Suspect]
     Active Substance: METHOTREXATE
     Indication: Product used for unknown indication
     Route: 065
  4. ASPIRIN [Concomitant]
     Active Substance: ASPIRIN
  5. CALTRATE WITH VITAMIN D [Concomitant]
     Active Substance: CALCIUM CARBONATE\CHOLECALCIFEROL
  6. EXELON PATCH 5 [Concomitant]
  7. FOLIC ACID [Concomitant]
     Active Substance: FOLIC ACID
     Dosage: NOT MTX DAY
  8. GLICLAZIDE [Concomitant]
     Active Substance: GLICLAZIDE
     Dosage: 30MG X 1 MANE
  9. HYDROXOCOBALAMIN [Concomitant]
     Active Substance: HYDROXOCOBALAMIN
  10. LEVETIRACETAM [Concomitant]
     Active Substance: LEVETIRACETAM
  11. BENSERAZIDE HYDROCHLORIDE\LEVODOPA [Concomitant]
     Active Substance: BENSERAZIDE HYDROCHLORIDE\LEVODOPA
     Dosage: MADOPAR 125
  12. MAXIDEX OPHTHALMIC [Concomitant]
  13. NIZATIDINE [Concomitant]
     Active Substance: NIZATIDINE
     Dosage: 300MGS X 1 NOCTE
  14. PANTOPRAZOLE [Concomitant]
     Active Substance: PANTOPRAZOLE
  15. PROLIA [Concomitant]
     Active Substance: DENOSUMAB

REACTIONS (3)
  - Ill-defined disorder [Unknown]
  - Scleritis [Unknown]
  - Scleritis [Unknown]

NARRATIVE: CASE EVENT DATE: 20220201
